FAERS Safety Report 15049044 (Version 1)
Quarter: 2018Q2

REPORT INFORMATION
  Report Type: Spontaneous
  Country: US (occurrence: US)
  Receive Date: 20180622
  Receipt Date: 20180622
  Transmission Date: 20180711
  Serious: Yes (Other)
  Sender: FDA-Public Use
  Company Number: US-BRISTOL-MYERS SQUIBB COMPANY-BMS-2018-055748

PATIENT
  Age: 48 Year
  Sex: Female

DRUGS (1)
  1. ORENCIA [Suspect]
     Active Substance: ABATACEPT
     Indication: MIXED CONNECTIVE TISSUE DISEASE
     Dosage: UNK UNK, QWK
     Route: 058

REACTIONS (3)
  - Product use in unapproved indication [Unknown]
  - Arthropathy [Unknown]
  - Device malfunction [Unknown]

NARRATIVE: CASE EVENT DATE: 20180530
